FAERS Safety Report 4294413-9 (Version None)
Quarter: 2004Q1

REPORT INFORMATION
  Report Type: 
  Country: None (occurrence: None)
  Receive Date: 20040211
  Receipt Date: 20040128
  Transmission Date: 20041129
  Serious: Yes (Other)
  Sender: FDA-Public Use
  Company Number: US_0402100318

PATIENT
  Sex: Male
  Weight: 123 kg

DRUGS (12)
  1. HUMALOG [Suspect]
     Dosage: 80 U/2 DAY
     Dates: start: 20020101
  2. DILTIAZEM [Concomitant]
  3. BENAZEPRIL HCL [Concomitant]
  4. CLOPIDOGREL BISULFATE [Concomitant]
  5. BENAZEPRIL HCL [Concomitant]
  6. METOPROLOL SUCCINATE [Concomitant]
  7. THEOPHYLLINE [Concomitant]
  8. SALMETEROL [Concomitant]
  9. OXYGEN [Concomitant]
  10. AMLODIPINE [Concomitant]
  11. HYDROCHLOROTHIAZIDE [Concomitant]
  12. BENAZEPRIL HCL [Concomitant]

REACTIONS (8)
  - ACTIVITIES OF DAILY LIVING IMPAIRED [None]
  - BLOOD GLUCOSE INCREASED [None]
  - BRAIN HYPOXIA [None]
  - CHRONIC OBSTRUCTIVE AIRWAYS DISEASE [None]
  - MEMORY IMPAIRMENT [None]
  - PHARMACEUTICAL PRODUCT COMPLAINT [None]
  - PULMONARY FIBROSIS [None]
  - SOMNOLENCE [None]
